FAERS Safety Report 20445070 (Version 1)
Quarter: 2022Q1

REPORT INFORMATION
  Report Type: Spontaneous
  Country: DK (occurrence: DK)
  Receive Date: 20220208
  Receipt Date: 20220208
  Transmission Date: 20220423
  Serious: Yes (Life-Threatening, Hospitalization, Disabling)
  Sender: FDA-Public Use
  Company Number: None

PATIENT
  Age: 74 Year
  Sex: Male
  Weight: 106 kg

DRUGS (1)
  1. RIVAROXABAN [Suspect]
     Active Substance: RIVAROXABAN
     Indication: Atrial flutter
     Dosage: STRENGTH: 15 MG
     Route: 048
     Dates: start: 20200108, end: 20220113

REACTIONS (6)
  - Facial paresis [Unknown]
  - Haemorrhage intracranial [Recovered/Resolved with Sequelae]
  - Monoparesis [Unknown]
  - Eye movement disorder [Unknown]
  - Muscular weakness [Unknown]
  - Monoplegia [Unknown]

NARRATIVE: CASE EVENT DATE: 20220113
